FAERS Safety Report 5086448-3 (Version None)
Quarter: 2006Q3

REPORT INFORMATION
  Report Type: 
  Country: None (occurrence: None)
  Receive Date: 20060703
  Receipt Date: 20050913
  Transmission Date: 20061208
  Serious: No
  Sender: FDA-Public Use
  Company Number: 2005S1009080

PATIENT
  Age: 43 Year
  Sex: Male

DRUGS (11)
  1. CLOZAPINE [Suspect]
     Indication: SCHIZOPHRENIA, PARANOID TYPE
     Dosage: SEE IMAGE
     Route: 048
     Dates: start: 20040204
  2. CLOZAPINE [Suspect]
     Indication: SCHIZOPHRENIA, PARANOID TYPE
     Dosage: SEE IMAGE
     Route: 048
     Dates: start: 20040204
  3. DESMOPRESSIN [Concomitant]
  4. LORATADINE [Concomitant]
  5. DOCUSATE SODIUM [Concomitant]
  6. TAMSULOSIN HYDROCHLORIDE [Concomitant]
  7. VALPROATE SODIUM [Concomitant]
  8. FLUOXETINE [Concomitant]
  9. LEVOTHYROXINE SODIUM [Concomitant]
  10. FAMOTIDINE [Concomitant]
  11. TOLTERODINE TARTRATE [Concomitant]

REACTIONS (1)
  - GRANULOCYTOPENIA [None]
